FAERS Safety Report 24993040 (Version 2)
Quarter: 2025Q1

REPORT INFORMATION
  Report Type: Report from Study
  Country: US (occurrence: US)
  Receive Date: 20250221
  Receipt Date: 20250301
  Transmission Date: 20250408
  Serious: Yes (Other)
  Sender: ABBVIE
  Company Number: US-ABBVIE-6139390

PATIENT
  Age: 63 Year
  Sex: Female

DRUGS (1)
  1. SKYRIZI [Suspect]
     Active Substance: RISANKIZUMAB-RZAA
     Indication: Psoriasis
     Dosage: DOSAGE: 150 MG/ML
     Route: 058
     Dates: start: 202301

REACTIONS (4)
  - Basal cell carcinoma [Recovering/Resolving]
  - Therapeutic product effect decreased [Unknown]
  - Stress [Recovering/Resolving]
  - Psoriasis [Recovering/Resolving]

NARRATIVE: CASE EVENT DATE: 20241201
